FAERS Safety Report 15664312 (Version 1)
Quarter: 2018Q4

REPORT INFORMATION
  Report Type: Spontaneous
  Country: US (occurrence: US)
  Receive Date: 20181116
  Receipt Date: 20181116
  Transmission Date: 20190205
  Serious: No
  Sender: FDA-Public Use
  Company Number: None

PATIENT
  Age: 70 Year
  Sex: Female

DRUGS (1)
  1. BENLYSTA [Suspect]
     Active Substance: BELIMUMAB
     Indication: CONNECTIVE TISSUE DISORDER
     Route: 058
     Dates: start: 20170322, end: 20181107

REACTIONS (1)
  - White blood cell count increased [None]

NARRATIVE: CASE EVENT DATE: 201808
